FAERS Safety Report 23801835 (Version 1)
Quarter: 2024Q2

REPORT INFORMATION
  Report Type: Spontaneous
  Country: AT (occurrence: AT)
  Receive Date: 20240501
  Receipt Date: 20240501
  Transmission Date: 20240715
  Serious: Yes (Other)
  Sender: FDA-Public Use
  Company Number: None

PATIENT
  Age: 35 Year
  Sex: Female
  Weight: 62 kg

DRUGS (62)
  1. TAXOTERE [Suspect]
     Active Substance: DOCETAXEL
     Indication: HER2 positive breast cancer
     Dosage: 25 MG, QD
     Dates: start: 20200120, end: 20230630
  2. TAXOTERE [Suspect]
     Active Substance: DOCETAXEL
     Indication: HER2 positive breast cancer
     Dosage: 75 MG/M2, Q3W
     Route: 042
     Dates: start: 20170621, end: 20171115
  3. CAPECITABINE [Suspect]
     Active Substance: CAPECITABINE
     Indication: HER2 positive breast cancer
     Dosage: 1000 MG
     Route: 048
     Dates: start: 20220623, end: 20230612
  4. LETROZOLE [Suspect]
     Active Substance: LETROZOLE
     Indication: HER2 positive breast cancer
     Dosage: 2.5 MG, QD
     Route: 048
     Dates: start: 20180108, end: 20200120
  5. LETROZOLE [Suspect]
     Active Substance: LETROZOLE
     Indication: HER2 positive breast cancer
     Dosage: 250 MG, QD (MOST RECENT DOSE PRIOR TO AE 09/JUL/2021)
     Dates: start: 20201028, end: 20210709
  6. LETROZOLE [Suspect]
     Active Substance: LETROZOLE
     Dosage: 250 MG, QD (MOST RECENT DOSE PRIOR TO AE 09/JUL/2021)
     Dates: start: 20230630
  7. KADCYLA [Suspect]
     Active Substance: ADO-TRASTUZUMAB EMTANSINE
     Indication: HER2 positive breast cancer
     Dosage: 600 MG/KG, ONCE EVERY 3 WK (MOST RECENT DOSE PRIOR TO THE EVENT: 23/JUN/2022)
     Dates: start: 20220623
  8. KADCYLA [Suspect]
     Active Substance: ADO-TRASTUZUMAB EMTANSINE
     Indication: Product used for unknown indication
     Dosage: 208.8 MG, ONCE EVERY 1 WK (ONCE EVERY 3 WK)
     Route: 042
     Dates: start: 20200120, end: 20200302
  9. KADCYLA [Suspect]
     Active Substance: ADO-TRASTUZUMAB EMTANSINE
     Dosage: 237 MG, ONCE EVERY 1 WK (ONCE EVERY 3 WK)
     Dates: start: 20200323, end: 20201006
  10. KADCYLA [Suspect]
     Active Substance: ADO-TRASTUZUMAB EMTANSINE
     Dosage: 8 MG/KG, ONCE EVERY 3 WK (MOST RECENT DOSE PRIOR TO THE EVENT: 23/JUN/2022)
     Dates: start: 20170712, end: 20171115
  11. KADCYLA [Suspect]
     Active Substance: ADO-TRASTUZUMAB EMTANSINE
     Dosage: 8 MG/KG, ONCE EVERY 3 WK (MOST RECENT DOSE PRIOR TO THE EVENT: 23/JUN/2022)
     Dates: start: 20170621, end: 20170621
  12. KADCYLA [Suspect]
     Active Substance: ADO-TRASTUZUMAB EMTANSINE
     Dosage: 8 MG/KG, ONCE EVERY 3 WK (MOST RECENT DOSE PRIOR TO THE EVENT: 23/JUN/2022)
     Dates: start: 20180108, end: 20190127
  13. KADCYLA [Suspect]
     Active Substance: ADO-TRASTUZUMAB EMTANSINE
     Dosage: 208 MG, ONCE EVERY 1 WK (ONCE EVERY 3 WK)
     Dates: start: 20200120, end: 20200302
  14. XGEVA [Suspect]
     Active Substance: DENOSUMAB
     Indication: HER2 positive breast cancer
     Dosage: 3.6 MG, Q4W
     Dates: start: 20180129
  15. XGEVA [Suspect]
     Active Substance: DENOSUMAB
     Indication: Product used for unknown indication
  16. GOSERELIN [Suspect]
     Active Substance: GOSERELIN
     Indication: HER2 positive breast cancer
     Dosage: 3.6 MG, Q4W
     Route: 058
     Dates: start: 20180108
  17. GOSERELIN [Suspect]
     Active Substance: GOSERELIN
     Indication: Product used for unknown indication
     Dosage: UNK
     Route: 048
     Dates: start: 20230508, end: 20230515
  18. TUCATINIB [Suspect]
     Active Substance: TUCATINIB
     Indication: HER2 positive breast cancer
     Dosage: 840 MG, ONCE EVERY 3 WK (MOST RECENT DOSE PRIOR TO THE EVENT: 8/JAN/2028)
     Dates: start: 20170621
  19. TUCATINIB [Suspect]
     Active Substance: TUCATINIB
     Dosage: 420 MG, ONCE EVERY 3 WK (MOST RECENT DOSE PRIOR TO THE EVENT: 8/JAN/2028)
     Dates: start: 20170712, end: 20171115
  20. TUCATINIB [Suspect]
     Active Substance: TUCATINIB
     Dosage: 420 MG, ONCE EVERY 3 WK (MOST RECENT DOSE PRIOR TO THE EVENT: 8/JAN/2028)
     Dates: start: 20180108, end: 20191127
  21. TUCATINIB [Suspect]
     Active Substance: TUCATINIB
     Indication: HER2 positive breast cancer
     Dosage: 150 MG
     Route: 048
     Dates: start: 20220623, end: 20230612
  22. KADCYLA [Suspect]
     Active Substance: ADO-TRASTUZUMAB EMTANSINE
     Indication: HER2 positive breast cancer
     Dosage: 237 MG, Q3W
     Route: 042
     Dates: start: 20200323, end: 20201006
  23. TRASTUZUMAB [Suspect]
     Active Substance: TRASTUZUMAB
     Indication: HER2 positive breast cancer
     Dosage: 8 MG/KG, Q3W
     Route: 042
     Dates: start: 20170621, end: 20170621
  24. TRASTUZUMAB [Suspect]
     Active Substance: TRASTUZUMAB
     Dosage: 6MG/KG, Q3W
     Route: 042
     Dates: start: 20170712, end: 20171115
  25. TRASTUZUMAB [Suspect]
     Active Substance: TRASTUZUMAB
     Dosage: 6MG/KG, Q3W
     Route: 042
     Dates: start: 20180108, end: 20191127
  26. TRASTUZUMAB [Suspect]
     Active Substance: TRASTUZUMAB
     Indication: HER2 positive breast cancer
     Dosage: 600MG, Q3W
     Route: 058
     Dates: start: 20201028, end: 20210709
  27. TRASTUZUMAB [Suspect]
     Active Substance: TRASTUZUMAB
     Dosage: 600MG, Q3W
     Route: 058
     Dates: start: 20220623
  28. ANASTROZOLE [Suspect]
     Active Substance: ANASTROZOLE
     Indication: Product used for unknown indication
     Dosage: 1 MG, QD
     Route: 048
     Dates: start: 20230630
  29. EXEMESTANE [Suspect]
     Active Substance: EXEMESTANE
     Indication: HER2 positive breast cancer
     Dosage: UNK
     Route: 048
     Dates: start: 20200120, end: 20230630
  30. TYKERB [Suspect]
     Active Substance: LAPATINIB DITOSYLATE
     Indication: HER2 positive breast cancer
     Dosage: 250 MG
     Route: 048
     Dates: start: 20230630
  31. TYKERB [Suspect]
     Active Substance: LAPATINIB DITOSYLATE
     Dosage: 250MG, QD
     Route: 048
     Dates: start: 20201028, end: 20210709
  32. TYKERB [Suspect]
     Active Substance: LAPATINIB DITOSYLATE
     Indication: Product used for unknown indication
     Dosage: UNK
  33. ENHERTU [Suspect]
     Active Substance: FAM-TRASTUZUMAB DERUXTECAN-NXKI
     Indication: HER2 positive breast cancer
     Dosage: 360 MG, Q3W
     Route: 042
     Dates: start: 20210722, end: 20230703
  34. PERTUZUMAB [Suspect]
     Active Substance: PERTUZUMAB
     Indication: HER2 positive breast cancer
     Dosage: 420MG, Q3W
     Route: 042
     Dates: start: 20170712, end: 20171115
  35. PERTUZUMAB [Suspect]
     Active Substance: PERTUZUMAB
     Dosage: 420MG, Q3W
     Route: 042
     Dates: start: 20180108, end: 20191127
  36. PERTUZUMAB [Suspect]
     Active Substance: PERTUZUMAB
     Dosage: 840MG, Q3W
     Route: 042
     Dates: start: 20170621, end: 20170621
  37. XGEVA [Concomitant]
     Active Substance: DENOSUMAB
     Dosage: ONGOING = CHECKED
     Dates: start: 20170621
  38. DIPHENHYDRAMINE HYDROCHLORIDE [Concomitant]
     Active Substance: DIPHENHYDRAMINE HYDROCHLORIDE
     Indication: Product used for unknown indication
     Dosage: UNK
     Route: 048
     Dates: start: 20230508, end: 20230515
  39. LEVETIRACETAM [Concomitant]
     Active Substance: LEVETIRACETAM
     Dosage: UNK
     Dates: start: 20200102
  40. LEVETIRACETAM [Concomitant]
     Active Substance: LEVETIRACETAM
     Indication: Product used for unknown indication
     Dosage: UNK
     Route: 048
     Dates: start: 20230508, end: 20230515
  41. ESOMEPRAZOLE [Concomitant]
     Active Substance: ESOMEPRAZOLE
     Indication: Product used for unknown indication
     Dosage: UNK
     Dates: start: 20191230
  42. KETAMINE HYDROCHLORIDE [Concomitant]
     Active Substance: KETAMINE HYDROCHLORIDE
     Indication: Product used for unknown indication
     Dosage: UNK
     Route: 048
     Dates: start: 20230508, end: 20230515
  43. NOVALGIN (METAMIZOLE SODIUM) [Concomitant]
     Active Substance: METAMIZOLE SODIUM
     Dosage: ONGOING = CHECKED
     Dates: start: 20180515
  44. NOVALGIN (METAMIZOLE SODIUM) [Concomitant]
     Active Substance: METAMIZOLE SODIUM
     Indication: Product used for unknown indication
     Dosage: UNK
     Route: 048
     Dates: start: 20230508, end: 20230515
  45. FENTANYL [Concomitant]
     Active Substance: FENTANYL\FENTANYL CITRATE
     Indication: Product used for unknown indication
     Dosage: UNK
  46. AMOXICILLIN\CLAVULANATE POTASSIUM [Concomitant]
     Active Substance: AMOXICILLIN\CLAVULANATE POTASSIUM
     Indication: Pneumonia
     Dosage: UNK, ONGOING = NOT CHECKED
     Dates: start: 20230508, end: 20230515
  47. GOSERELIN [Concomitant]
     Active Substance: GOSERELIN
     Dosage: UNK
     Dates: start: 20180129
  48. PROPOFOL [Concomitant]
     Active Substance: PROPOFOL
     Indication: Product used for unknown indication
     Dosage: UNK
  49. KETOPROFEN [Concomitant]
     Active Substance: KETOPROFEN
     Indication: Product used for unknown indication
     Dosage: UNK
     Route: 048
     Dates: start: 20230508, end: 20230515
  50. ESOMEPRAZOLE [Concomitant]
     Active Substance: ESOMEPRAZOLE
     Indication: Product used for unknown indication
     Dosage: UNK
     Route: 048
     Dates: start: 20230508, end: 20230515
  51. ESOMEPRAZOLE [Concomitant]
     Active Substance: ESOMEPRAZOLE
     Dosage: UNK
     Route: 048
     Dates: start: 20170621, end: 20230515
  52. UNASYN [Concomitant]
     Active Substance: AMPICILLIN SODIUM\SULBACTAM SODIUM
     Indication: Pneumonia
     Dosage: UNK, ONGOING = NOT CHECKED
     Route: 048
     Dates: start: 20230507, end: 20230515
  53. DEXABENE [Concomitant]
     Indication: Product used for unknown indication
     Dosage: UNK
     Route: 048
     Dates: start: 20230508, end: 20230515
  54. LIPEGFILGRASTIM [Concomitant]
     Active Substance: LIPEGFILGRASTIM
     Indication: Product used for unknown indication
     Dosage: UNK
     Route: 048
     Dates: start: 20230508, end: 20230515
  55. ZOFRAN [Concomitant]
     Active Substance: ONDANSETRON HYDROCHLORIDE
     Indication: Product used for unknown indication
     Dosage: UNK
     Route: 048
     Dates: start: 20230508, end: 20230515
  56. ZOFRAN [Concomitant]
     Active Substance: ONDANSETRON HYDROCHLORIDE
     Dosage: UNK
     Route: 048
     Dates: start: 20230508, end: 20230515
  57. APREPITANT [Concomitant]
     Active Substance: APREPITANT
     Indication: Product used for unknown indication
     Dosage: UNK
     Dates: start: 20210812
  58. LOPERAMIDE HYDROCHLORIDE [Concomitant]
     Active Substance: LOPERAMIDE HYDROCHLORIDE
     Indication: Product used for unknown indication
     Dosage: UNK
     Route: 048
     Dates: start: 20201028, end: 20230515
  59. CALCIDURAN [ASCORBIC ACID;CALCIUM PHOSPHATE;CITRIC ACID;COLECALCIFEROL [Concomitant]
     Indication: Product used for unknown indication
     Dosage: UNK
     Route: 048
     Dates: start: 20171025, end: 20230515
  60. DEXAMETHASONE [Concomitant]
     Active Substance: DEXAMETHASONE
     Indication: Syncope
     Dosage: UNK
     Dates: start: 20201111
  61. DEXAMETHASONE [Concomitant]
     Active Substance: DEXAMETHASONE
     Dosage: UNK
     Dates: start: 20230509
  62. CLOBAZAM [Concomitant]
     Active Substance: CLOBAZAM
     Indication: Epilepsy
     Dosage: UNK
     Dates: start: 20230508

REACTIONS (1)
  - Cataract [Recovered/Resolved]
